FAERS Safety Report 16457849 (Version 1)
Quarter: 2019Q2

REPORT INFORMATION
  Report Type: Report from Study
  Country: CA (occurrence: CA)
  Receive Date: 20190620
  Receipt Date: 20190620
  Transmission Date: 20190711
  Serious: Yes (Other)
  Sender: FDA-Public Use
  Company Number: CA-PFIZER INC-2016102921

PATIENT
  Sex: Male
  Weight: 4.5 kg

DRUGS (6)
  1. SODIUM CHLORIDE. [Concomitant]
     Active Substance: SODIUM CHLORIDE
     Indication: HYPOTENSION
     Dosage: 10 ML/KG
  2. EPINEPHRINE. [Suspect]
     Active Substance: EPINEPHRINE
     Dosage: UNK (0.10 UG/KG/MIN)
  3. DOPAMINE [Concomitant]
     Active Substance: DOPAMINE\DOPAMINE HYDROCHLORIDE
     Indication: HYPOTENSION
     Dosage: 12 UG/KG/MIN
  4. DOBUTAMINE [Concomitant]
     Active Substance: DOBUTAMINE\DOBUTAMINE HYDROCHLORIDE
     Indication: HYPOTENSION
     Dosage: 5 UG/KG/MIN
  5. HYDROCORTISONE. [Concomitant]
     Active Substance: HYDROCORTISONE
     Indication: HYPOTENSION
  6. NITRIC OXIDE. [Concomitant]
     Active Substance: NITRIC OXIDE

REACTIONS (2)
  - Blood lactic acid increased [Unknown]
  - Condition aggravated [Unknown]
